FAERS Safety Report 24076543 (Version 4)
Quarter: 2024Q3

REPORT INFORMATION
  Report Type: Spontaneous
  Country: AU (occurrence: AU)
  Receive Date: 20240711
  Receipt Date: 20240920
  Transmission Date: 20241016
  Serious: Yes (Hospitalization)
  Sender: CSL BEHRING
  Company Number: AU-BEH-2024174536

PATIENT
  Age: 74 Year
  Sex: Female
  Weight: 54.96 kg

DRUGS (3)
  1. HUMAN IMMUNOGLOBULIN G [Suspect]
     Active Substance: HUMAN IMMUNOGLOBULIN G
     Indication: Acute leukaemia
     Dosage: 120 ML, HS
     Route: 042
     Dates: start: 20240619, end: 20240619
  2. HUMAN IMMUNOGLOBULIN G [Suspect]
     Active Substance: HUMAN IMMUNOGLOBULIN G
     Indication: Non-Hodgkin^s lymphoma
  3. OCTAGAM IMMUNE GLOBULIN (HUMAN) [Suspect]
     Active Substance: HUMAN IMMUNOGLOBULIN G
     Route: 065

REACTIONS (14)
  - Chest pain [Unknown]
  - Chills [Unknown]
  - Hypoxia [Unknown]
  - Oxygen saturation decreased [Unknown]
  - Pyrexia [Unknown]
  - Respiratory rate increased [Unknown]
  - Lower respiratory tract infection [Unknown]
  - Muscle spasms [Unknown]
  - Chest pain [Recovered/Resolved]
  - Back pain [Unknown]
  - Dyspnoea [Unknown]
  - Hypertension [Unknown]
  - Oxygen saturation decreased [Unknown]
  - Respiratory rate increased [Unknown]

NARRATIVE: CASE EVENT DATE: 20240601
